FAERS Safety Report 6408367-X (Version None)
Quarter: 2009Q4

REPORT INFORMATION
  Report Type: 
  Country: None (occurrence: None)
  Receive Date: 20091021
  Receipt Date: 20091006
  Transmission Date: 20100525
  Serious: Yes (Other)
  Sender: FDA-Public Use
  Company Number: BR-PFIZER INC-2009267429

PATIENT

DRUGS (1)
  1. DEPO-PROVERA [Suspect]
     Dosage: 150 MG
     Route: 030

REACTIONS (2)
  - CORNEAL TRANSPLANT [None]
  - TRANSPLANT REJECTION [None]
